FAERS Safety Report 4727984-6 (Version None)
Quarter: 2005Q3

REPORT INFORMATION
  Report Type: 
  Country: None (occurrence: None)
  Receive Date: 20050725
  Receipt Date: 20050421
  Transmission Date: 20060218
  Serious: No
  Sender: FDA-Public Use
  Company Number: USA050394443

PATIENT
  Age: 62 Year
  Sex: Female

DRUGS (3)
  1. STRATTERA [Suspect]
     Indication: ATTENTION DEFICIT/HYPERACTIVITY DISORDER
     Dosage: 40 MG DAY
     Dates: start: 20050326, end: 20050328
  2. DARVOCET-N 100 [Concomitant]
  3. XANAX (ALPRAZOLAM DUM) [Concomitant]

REACTIONS (8)
  - CHILLS [None]
  - DRY MOUTH [None]
  - HEADACHE [None]
  - INSOMNIA [None]
  - NERVOUSNESS [None]
  - PRURITUS [None]
  - STOMACH DISCOMFORT [None]
  - TREMOR [None]
